FAERS Safety Report 8478111-3 (Version None)
Quarter: 2012Q2

REPORT INFORMATION
  Report Type: 
  Country: None (occurrence: None)
  Receive Date: 20120629
  Receipt Date: 20120625
  Transmission Date: 20120825
  Serious: Yes (Hospitalization, Other)
  Sender: FDA-Public Use
  Company Number: JP-PFIZER INC-2012106949

PATIENT
  Age: 7 Year
  Sex: Female
  Weight: 22.6 kg

DRUGS (13)
  1. GENOTROPIN [Suspect]
     Dosage: 0.45 MG, 1X/DAY
     Route: 058
     Dates: start: 20100830, end: 20110529
  2. SEPAMIT [Concomitant]
     Indication: HYPERTENSION
     Dosage: 62.5 UG, 2X/DAY
     Route: 048
  3. SODIUM BICARBONATE [Concomitant]
     Dosage: 1.4 G, 2X/DAY
     Route: 048
     Dates: start: 20111128
  4. FERROUS CITRATE [Concomitant]
     Dosage: 75 MG, 1X/DAY
     Route: 048
     Dates: start: 20110627
  5. GENOTROPIN [Suspect]
     Indication: RENAL FAILURE CHRONIC
     Dosage: 0.4 MG, 1X/DAY
     Route: 058
     Dates: start: 20100406, end: 20100829
  6. LOSARTAN POTASSIUM [Concomitant]
     Indication: HYPERTENSION
     Dosage: 7.5 MG, 1X/DAY
     Route: 048
  7. ALLOPURINOL [Concomitant]
     Indication: HYPERTENSION
     Dosage: 25 MG, 2X/DAY
     Route: 048
  8. GENOTROPIN [Suspect]
     Dosage: 0.5 MG, 1X/DAY
     Route: 058
     Dates: start: 20110530, end: 20111027
  9. GENOTROPIN [Suspect]
     Dosage: 0.55 MG, 1X/DAY
     Route: 058
     Dates: start: 20111028, end: 20120501
  10. SODIUM BICARBONATE [Concomitant]
     Indication: ACIDOSIS
     Dosage: 1.25 G, 2X/DAY
     Route: 048
     Dates: end: 20110227
  11. KREMEZIN [Concomitant]
     Indication: RENAL FAILURE CHRONIC
     Dosage: 2 G, 1X/DAY
     Route: 048
     Dates: start: 20100101, end: 20101128
  12. FERROUS CITRATE [Concomitant]
     Indication: ANAEMIA
     Dosage: 50 MG, 1X/DAY
     Route: 048
     Dates: end: 20110626
  13. KREMEZIN [Concomitant]
     Dosage: 2.5 G, 1X/DAY
     Route: 048
     Dates: start: 20101129

REACTIONS (1)
  - EXUDATIVE RETINOPATHY [None]
